FAERS Safety Report 5311371-6 (Version None)
Quarter: 2007Q2

REPORT INFORMATION
  Report Type: 
  Country: None (occurrence: None)
  Receive Date: 20070423
  Receipt Date: 20070410
  Transmission Date: 20071010
  Serious: Yes (Other)
  Sender: FDA-Public Use
  Company Number: 6032025

PATIENT
  Age: 74 Year
  Sex: Female

DRUGS (5)
  1. CILOSTAZOL [Suspect]
     Indication: THROMBOSIS PROPHYLAXIS
     Dosage: 200 MG (200 MG, 1 IN 1 D)
  2. ASPIRIN [Concomitant]
  3. TICLOPIDINE (TICLOPIDINE) [Concomitant]
  4. CADESARTAN CILEXETIL (CANDERSATAN CILEXETIL) [Concomitant]
  5. ISOSORBIDE DINITRATE (INTRAVENOUS INFUSION) (ISOSORBIDE DINITRATE) [Concomitant]

REACTIONS (4)
  - CARDIAC MURMUR [None]
  - HEART RATE INCREASED [None]
  - HYPOKINESIA [None]
  - VENTRICULAR DYSFUNCTION [None]
